FAERS Safety Report 16031651 (Version 5)
Quarter: 2022Q1

REPORT INFORMATION
  Report Type: Spontaneous
  Country: US (occurrence: None)
  Receive Date: 20190304
  Receipt Date: 20220215
  Transmission Date: 20220423
  Serious: Yes (Other)
  Sender: FDA-Public Use
  Company Number: 2018SF35037

PATIENT
  Age: 16840 Day
  Sex: Female

DRUGS (41)
  1. NEXIUM [Suspect]
     Active Substance: ESOMEPRAZOLE MAGNESIUM
     Indication: Gastrooesophageal reflux disease
     Route: 048
     Dates: start: 20140101, end: 20161231
  2. NEXIUM [Suspect]
     Active Substance: ESOMEPRAZOLE MAGNESIUM
     Indication: Gastrooesophageal reflux disease
     Route: 048
     Dates: start: 200904, end: 201712
  3. NEXIUM [Suspect]
     Active Substance: ESOMEPRAZOLE MAGNESIUM
     Indication: Gastrooesophageal reflux disease
     Route: 048
  4. NEXIUM [Suspect]
     Active Substance: ESOMEPRAZOLE MAGNESIUM
     Indication: Gastrooesophageal reflux disease
     Route: 048
  5. NEXIUM [Suspect]
     Active Substance: ESOMEPRAZOLE MAGNESIUM
     Indication: Gastrooesophageal reflux disease
     Route: 048
  6. OMEPRAZOLE [Suspect]
     Active Substance: OMEPRAZOLE
     Indication: Gastrooesophageal reflux disease
     Dosage: GENERIC
     Route: 065
     Dates: start: 201004, end: 201208
  7. PANTOPRAZOLE [Suspect]
     Active Substance: PANTOPRAZOLE
     Indication: Gastrooesophageal reflux disease
     Dosage: GENERIC
     Route: 065
     Dates: start: 201507, end: 201508
  8. VELTASSA [Concomitant]
     Active Substance: PATIROMER
  9. FLUTICASONE [Concomitant]
     Active Substance: FLUTICASONE
  10. FUROSEMIDE [Concomitant]
     Active Substance: FUROSEMIDE
  11. CEFDINIR [Concomitant]
     Active Substance: CEFDINIR
  12. ASCORBIC ACID\BIOTIN\CALCIUM PANTOTHENATE\CYANOCOBALAMIN\FOLIC ACID\NI [Concomitant]
     Active Substance: ASCORBIC ACID\BIOTIN\CALCIUM PANTOTHENATE\CYANOCOBALAMIN\FOLIC ACID\NIACINAMIDE\PYRIDOXINE HYDROCHLO
  13. IBUPROFEN [Concomitant]
     Active Substance: IBUPROFEN
  14. AMOXICILLIN [Concomitant]
     Active Substance: AMOXICILLIN
  15. PROVENTIL [Concomitant]
     Active Substance: ALBUTEROL
  16. ASPIRIN [Concomitant]
     Active Substance: ASPIRIN
  17. METOPROLOL TARTRATE [Concomitant]
     Active Substance: METOPROLOL TARTRATE
  18. ASMANEX [Concomitant]
     Active Substance: MOMETASONE FUROATE
  19. ONDANSETRON [Concomitant]
     Active Substance: ONDANSETRON
  20. SERTRALINE [Concomitant]
     Active Substance: SERTRALINE HYDROCHLORIDE
  21. LYRICA [Concomitant]
     Active Substance: PREGABALIN
  22. MONTELUKAST [Concomitant]
     Active Substance: MONTELUKAST SODIUM
  23. PREDNISONE [Concomitant]
     Active Substance: PREDNISONE
  24. ATORVASTATIN [Concomitant]
     Active Substance: ATORVASTATIN
  25. BANOPHEN [Concomitant]
     Active Substance: DIPHENHYDRAMINE HYDROCHLORIDE
  26. ACETAMINOPHEN [Concomitant]
     Active Substance: ACETAMINOPHEN
  27. NASTURTIUM OFFICINALE/SODIUM SULFATE/MYOSOTIS ARVENSIS/GERANIUM ROBERT [Concomitant]
  28. CALCITRIOL [Concomitant]
     Active Substance: CALCITRIOL
  29. SUMATRIPTAN [Concomitant]
     Active Substance: SUMATRIPTAN
  30. REGLAN [Concomitant]
     Active Substance: METOCLOPRAMIDE HYDROCHLORIDE
  31. LEVOFLOXACIN [Concomitant]
     Active Substance: LEVOFLOXACIN
  32. MUCINEX [Concomitant]
     Active Substance: GUAIFENESIN
  33. TEMAZEPAM [Concomitant]
     Active Substance: TEMAZEPAM
  34. SODIUM POLYSTYRENE SULFONATE [Concomitant]
     Active Substance: SODIUM POLYSTYRENE SULFONATE
  35. NICOTINAMIDE/CYANOCOBALAMIN/CYPROHEPTADINE/ALPHA-AMYLASE SWINE PANCREA [Concomitant]
  36. ENALAPRIL [Concomitant]
     Active Substance: ENALAPRIL
  37. SUCRALFATE [Concomitant]
     Active Substance: SUCRALFATE
  38. AZITHROMYCIN [Concomitant]
     Active Substance: AZITHROMYCIN
  39. HUMALOG [Concomitant]
     Active Substance: INSULIN LISPRO
  40. RHINOCORT [Concomitant]
     Active Substance: BUDESONIDE
  41. GLIMEPIRIDE [Concomitant]
     Active Substance: GLIMEPIRIDE

REACTIONS (4)
  - Chronic kidney disease [Not Recovered/Not Resolved]
  - Renal failure [Unknown]
  - Renal injury [Unknown]
  - Acute kidney injury [Unknown]

NARRATIVE: CASE EVENT DATE: 20150730
